FAERS Safety Report 14891319 (Version 1)
Quarter: 2018Q2

REPORT INFORMATION
  Report Type: Spontaneous
  Country: US (occurrence: US)
  Receive Date: 20180514
  Receipt Date: 20180514
  Transmission Date: 20180711
  Serious: Yes (Hospitalization)
  Sender: FDA-Public Use
  Company Number: US-UNITED THERAPEUTICS-UNT-2017-016572

PATIENT
  Age: 74 Year
  Sex: Female

DRUGS (5)
  1. REMODULIN [Suspect]
     Active Substance: TREPROSTINIL
     Dosage: 0.022 ?G/KG, CONTINUING
     Route: 058
  2. REMODULIN [Suspect]
     Active Substance: TREPROSTINIL
     Indication: PULMONARY ARTERIAL HYPERTENSION
     Dosage: 0.0117 ?G/KG, CONTINUING
     Route: 058
     Dates: start: 20171026
  3. REMODULIN [Suspect]
     Active Substance: TREPROSTINIL
     Dosage: 0.0177 ?G/KG, CONTINUING
     Route: 058
  4. AMBRISENTAN [Suspect]
     Active Substance: AMBRISENTAN
     Indication: PULMONARY HYPERTENSION
     Dosage: 10 MG, QD
     Route: 065
     Dates: start: 20170705
  5. AMBRISENTAN [Suspect]
     Active Substance: AMBRISENTAN
     Dosage: 10 MG, QD
     Route: 065
     Dates: start: 20170706

REACTIONS (7)
  - Diarrhoea [Not Recovered/Not Resolved]
  - Fluid retention [Recovering/Resolving]
  - Infusion site swelling [Unknown]
  - Infusion site erythema [Unknown]
  - Feeling jittery [Unknown]
  - Infusion site pain [Unknown]
  - Drug ineffective [Not Recovered/Not Resolved]

NARRATIVE: CASE EVENT DATE: 2017
